FAERS Safety Report 8491133-1 (Version None)
Quarter: 2012Q3

REPORT INFORMATION
  Report Type: 
  Country: None (occurrence: None)
  Receive Date: 20120706
  Receipt Date: 20120627
  Transmission Date: 20120928
  Serious: Yes (Hospitalization)
  Sender: FDA-Public Use
  Company Number: CH-SANOFI-AVENTIS-2012SA046439

PATIENT
  Age: 75 Year
  Sex: Male

DRUGS (9)
  1. VOLTAREN [Interacting]
     Route: 048
     Dates: end: 20120421
  2. COUMADIN [Suspect]
     Route: 048
     Dates: end: 20120421
  3. MAGNESIUM DIASPORAL [Concomitant]
     Route: 048
  4. PROSCAR [Concomitant]
     Route: 048
  5. ASPIRIN [Suspect]
     Route: 048
     Dates: end: 20120421
  6. AMLODIPINE/VALSARTAN [Concomitant]
     Route: 048
  7. PLAVIX [Suspect]
     Route: 048
  8. ARCOXIA [Suspect]
     Route: 048
     Dates: end: 20120421
  9. ROSUVASTATIN [Concomitant]
     Route: 048
     Dates: end: 20120421

REACTIONS (6)
  - SYNCOPE [None]
  - MELAENA [None]
  - ANAEMIA [None]
  - RENAL FAILURE CHRONIC [None]
  - DUODENAL ULCER [None]
  - GASTROINTESTINAL HAEMORRHAGE [None]
